FAERS Safety Report 7081310-9 (Version None)
Quarter: 2010Q4

REPORT INFORMATION
  Report Type: 
  Country: None (occurrence: None)
  Receive Date: 20101103
  Receipt Date: 20101020
  Transmission Date: 20110411
  Serious: Yes (Hospitalization, Other)
  Sender: FDA-Public Use
  Company Number: PHHY2010JP70789

PATIENT
  Sex: Female
  Weight: 42 kg

DRUGS (11)
  1. DIOVAN [Suspect]
     Indication: HYPERTENSION
     Dosage: 40 MG ONCE DAILY
     Route: 048
     Dates: start: 20090903
  2. ADALAT CC [Concomitant]
     Dosage: 20 MG
     Route: 048
     Dates: start: 20090903
  3. CANDESARTAN CILEXETIL [Concomitant]
     Dosage: 4 MG
     Route: 048
     Dates: start: 20090917
  4. BASEN [Concomitant]
     Dosage: 0.6 MG
     Route: 048
     Dates: start: 20090917
  5. GLUFAST [Concomitant]
     Dosage: 15 MG
     Route: 048
     Dates: start: 20090917
  6. PLAVIX [Concomitant]
     Dosage: 50 MG
     Route: 048
     Dates: start: 20090917
  7. LAMISIL [Concomitant]
     Dosage: 125 MG
     Route: 048
     Dates: start: 20090917, end: 20091015
  8. MERCKMEZIN [Concomitant]
     Dosage: 15 DF
     Route: 048
     Dates: start: 20090917
  9. ALLEGRA [Concomitant]
     Dosage: 120 MG
     Route: 048
     Dates: start: 20090917
  10. LASIX [Concomitant]
     Dosage: 20 MG
     Route: 048
     Dates: start: 20090924
  11. CALCIUM POLYSTYRENE SULFONATE [Concomitant]
     Dosage: 25 G
     Route: 048
     Dates: start: 20090924, end: 20091015

REACTIONS (6)
  - BLOOD PRESSURE DIASTOLIC DECREASED [None]
  - BLOOD URIC ACID INCREASED [None]
  - ECZEMA [None]
  - ERYTHEMA [None]
  - PRURITUS [None]
  - URTICARIA [None]
